FAERS Safety Report 6338219-5 (Version None)
Quarter: 2009Q3

REPORT INFORMATION
  Report Type: 
  Country: None (occurrence: None)
  Receive Date: 20090902
  Receipt Date: 20090901
  Transmission Date: 20100115
  Serious: Yes (Other)
  Sender: FDA-Public Use
  Company Number: FR-WYE-G04345109

PATIENT
  Sex: Female

DRUGS (3)
  1. ADVIL [Suspect]
     Dosage: UNKNOWN
     Route: 048
     Dates: start: 20090301, end: 20090301
  2. GAVISCON [Concomitant]
     Indication: HIATUS HERNIA
     Dosage: ON REQUEST
     Route: 048
  3. AUGMENTIN [Suspect]
     Dosage: UNKNOWN
     Route: 048
     Dates: start: 20090301, end: 20090301

REACTIONS (2)
  - LIP OEDEMA [None]
  - TONGUE OEDEMA [None]
